FAERS Safety Report 5238037-5 (Version None)
Quarter: 2007Q1

REPORT INFORMATION
  Report Type: 
  Country: None (occurrence: None)
  Receive Date: 20070214
  Receipt Date: 20070206
  Transmission Date: 20070707
  Serious: Yes (Other)
  Sender: FDA-Public Use
  Company Number: CA-PFIZER INC-2007010891

PATIENT
  Age: 62 Year
  Sex: Male

DRUGS (4)
  1. FRAGMIN [Suspect]
     Route: 058
  2. INSULIN [Concomitant]
     Route: 058
  3. ACTOS [Concomitant]
     Route: 048
  4. METFORMIN HCL [Concomitant]
     Route: 048

REACTIONS (1)
  - BLOOD GLUCOSE INCREASED [None]
